FAERS Safety Report 24955269 (Version 5)
Quarter: 2025Q3

REPORT INFORMATION
  Report Type: Report from Study
  Country: CA (occurrence: CA)
  Receive Date: 20250211
  Receipt Date: 20250730
  Transmission Date: 20251021
  Serious: Yes (Other)
  Sender: TAKEDA
  Company Number: CA-TAKEDA-2025TUS012560

PATIENT
  Age: 66 Year
  Sex: Female

DRUGS (7)
  1. VEDOLIZUMAB [Suspect]
     Active Substance: VEDOLIZUMAB
     Indication: Colitis ulcerative
  2. VEDOLIZUMAB [Suspect]
     Active Substance: VEDOLIZUMAB
  3. VEDOLIZUMAB [Suspect]
     Active Substance: VEDOLIZUMAB
  4. VEDOLIZUMAB [Suspect]
     Active Substance: VEDOLIZUMAB
  5. VEDOLIZUMAB [Suspect]
     Active Substance: VEDOLIZUMAB
     Dosage: 300 MILLIGRAM, Q4WEEKS
     Dates: start: 20250724
  6. PREDNISONE [Concomitant]
     Active Substance: PREDNISONE
  7. MESALAMINE [Concomitant]
     Active Substance: MESALAMINE

REACTIONS (14)
  - Haematochezia [Unknown]
  - Colitis ulcerative [Unknown]
  - Rectal haemorrhage [Unknown]
  - Gastrointestinal inflammation [Not Recovered/Not Resolved]
  - Abnormal faeces [Unknown]
  - Anal haemorrhage [Unknown]
  - Mucous stools [Unknown]
  - Gastrointestinal sounds abnormal [Unknown]
  - Off label use [Unknown]
  - Abdominal pain [Unknown]
  - Constipation [Unknown]
  - Abdominal distension [Unknown]
  - Flatulence [Unknown]
  - Fatigue [Unknown]

NARRATIVE: CASE EVENT DATE: 20250724
